FAERS Safety Report 13277926 (Version 1)
Quarter: 2017Q1

REPORT INFORMATION
  Report Type: Spontaneous
  Country: US (occurrence: US)
  Receive Date: 20170228
  Receipt Date: 20170228
  Transmission Date: 20170428
  Serious: No
  Sender: FDA-Public Use
  Company Number: US-009507513-1702USA001626

PATIENT
  Age: 31 Year
  Sex: Female

DRUGS (1)
  1. PREGNYL [Suspect]
     Active Substance: CHORIOGONADOTROPIN ALFA
     Indication: INFERTILITY
     Dosage: STRENGHT 10000 UNITS/ 10 ML, 10000 UNITS ONCE
     Route: 030
     Dates: start: 20160701, end: 20160701

REACTIONS (1)
  - Maternal exposure before pregnancy [Unknown]
